FAERS Safety Report 16970269 (Version 1)
Quarter: 2019Q4

REPORT INFORMATION
  Report Type: Spontaneous
  Country: US (occurrence: US)
  Receive Date: 20190912
  Receipt Date: 20190912
  Transmission Date: 20200122
  Serious: No
  Sender: FDA-Public Use
  Company Number: None

PATIENT
  Age: 55 Year
  Sex: Male
  Weight: 72.57 kg

DRUGS (1)
  1. SOMADERM TRANSDERMAL GEL [Suspect]
     Active Substance: HOMEOPATHICS
     Route: 048

REACTIONS (1)
  - Pleomorphic malignant fibrous histiocytoma [None]

NARRATIVE: CASE EVENT DATE: 20190826
